FAERS Safety Report 7244668-3 (Version None)
Quarter: 2011Q1

REPORT INFORMATION
  Report Type: 
  Country: None (occurrence: None)
  Receive Date: 20110125
  Receipt Date: 20101117
  Transmission Date: 20110831
  Serious: No
  Sender: FDA-Public Use
  Company Number: US-MYLANLABS-2010S1021344

PATIENT
  Age: 88 Year
  Sex: Female
  Weight: 63.5 kg

DRUGS (2)
  1. CLONIDINE [Suspect]
     Indication: BLOOD PRESSURE INCREASED
     Route: 062
     Dates: start: 20100601, end: 20101001
  2. ANTIHYPERTENSIVES [Concomitant]
     Indication: BLOOD PRESSURE INCREASED
     Dates: start: 20101101

REACTIONS (2)
  - APPLICATION SITE RASH [None]
  - HYPERSENSITIVITY [None]
